FAERS Safety Report 4488969-0 (Version None)
Quarter: 2004Q4

REPORT INFORMATION
  Report Type: 
  Country: None (occurrence: None)
  Receive Date: 20041029
  Receipt Date: 20041025
  Transmission Date: 20050328
  Serious: Yes (Other)
  Sender: FDA-Public Use
  Company Number: 200418228US

PATIENT
  Sex: Female

DRUGS (2)
  1. AMARYL [Suspect]
     Indication: DIABETES MELLITUS NON-INSULIN-DEPENDENT
     Dosage: DOSE: NOT PROVIDED
     Dates: end: 20041017
  2. ZOMIG [Concomitant]
     Indication: MIGRAINE
     Dosage: DOSE: NOT PROVIDED

REACTIONS (5)
  - CHEST PAIN [None]
  - DRUG INEFFECTIVE [None]
  - EYE DISORDER [None]
  - READING DISORDER [None]
  - VISION BLURRED [None]
